FAERS Safety Report 8290324-2 (Version None)
Quarter: 2012Q2

REPORT INFORMATION
  Report Type: 
  Country: None (occurrence: None)
  Receive Date: 20120412
  Receipt Date: 20120412
  Transmission Date: 20120825
  Serious: Yes (Other)
  Sender: FDA-Public Use
  Company Number: None

PATIENT
  Sex: Female
  Weight: 99.1 kg

DRUGS (1)
  1. ZOCOR [Suspect]
     Indication: BLOOD CHOLESTEROL
     Dosage: ZOCOR 40 MG DAILY MOUTH
     Route: 048
     Dates: start: 20030101

REACTIONS (8)
  - SKIN DISCOLOURATION [None]
  - CONSTIPATION [None]
  - PULMONARY OEDEMA [None]
  - HEART RATE INCREASED [None]
  - EAR PAIN [None]
  - DYSPNOEA [None]
  - CHEST DISCOMFORT [None]
  - TREMOR [None]
